FAERS Safety Report 7197151-8 (Version None)
Quarter: 2010Q4

REPORT INFORMATION
  Report Type: 
  Country: None (occurrence: None)
  Receive Date: 20101224
  Receipt Date: 20101220
  Transmission Date: 20110411
  Serious: Yes (Death)
  Sender: FDA-Public Use
  Company Number: PHHY2010CR86262

PATIENT
  Age: 72 Year
  Sex: Male

DRUGS (2)
  1. DIOVAN HCT [Suspect]
     Indication: HYPERTENSION
     Dosage: 320/12.5 MG PER DAY
     Route: 048
  2. DIURETICS [Concomitant]

REACTIONS (2)
  - BENIGN PROSTATIC HYPERPLASIA [None]
  - RENAL FAILURE CHRONIC [None]
